FAERS Safety Report 4744321-1 (Version None)
Quarter: 2005Q3

REPORT INFORMATION
  Report Type: 
  Country: None (occurrence: None)
  Receive Date: 20050811
  Receipt Date: 20050811
  Transmission Date: 20060218
  Serious: Yes (Hospitalization)
  Sender: FDA-Public Use
  Company Number: None

PATIENT
  Age: 46 Year
  Sex: Female
  Weight: 74.8435 kg

DRUGS (1)
  1. QUETIAPINE FUMARATE [Suspect]
     Dosage: 25 MG QHS ORAL
     Route: 048
     Dates: start: 20050707, end: 20050804

REACTIONS (5)
  - ACNE [None]
  - BLISTER [None]
  - RASH [None]
  - RASH PRURITIC [None]
  - SKIN INFECTION [None]
